FAERS Safety Report 5510313-8 (Version None)
Quarter: 2007Q4

REPORT INFORMATION
  Report Type: 
  Country: None (occurrence: None)
  Receive Date: 20071108
  Receipt Date: 20071031
  Transmission Date: 20080405
  Serious: Yes (Hospitalization)
  Sender: FDA-Public Use
  Company Number: FR-ABBOTT-07P-056-0423305-00

PATIENT
  Age: 34 Year
  Sex: Female

DRUGS (3)
  1. HUMIRA [Suspect]
     Indication: ANKYLOSING SPONDYLITIS
     Route: 058
     Dates: start: 20060515, end: 20061215
  2. HUMIRA [Suspect]
     Route: 058
     Dates: start: 20070301, end: 20070801
  3. SULFASALAZINE [Suspect]
     Indication: DRUG USE FOR UNKNOWN INDICATION
     Dates: start: 20050401, end: 20061101

REACTIONS (4)
  - ABDOMINAL PAIN [None]
  - DIARRHOEA [None]
  - SALMONELLOSIS [None]
  - SALPINGITIS [None]
